FAERS Safety Report 7132725-1 (Version None)
Quarter: 2010Q4

REPORT INFORMATION
  Report Type: 
  Country: None (occurrence: None)
  Receive Date: 20101117
  Receipt Date: 20101013
  Transmission Date: 20110411
  Serious: Yes (Other)
  Sender: FDA-Public Use
  Company Number: COL_02773_2010

PATIENT
  Sex: Male

DRUGS (6)
  1. COLGATE PEROXYL ANTISEPTIC ORAL CLEANSER, ORIGINAL MINT [Suspect]
     Indication: GINGIVITIS
     Dosage: (1 DF BID, [1/2 TO 1 OUNCE] ORAL)
     Route: 048
     Dates: end: 20101001
  2. VALPROIC ACID [Concomitant]
  3. KEPPRA [Concomitant]
  4. KLONOPIN [Concomitant]
  5. ATIVAN [Concomitant]
  6. TIZANDINE [Concomitant]

REACTIONS (4)
  - AMMONIA INCREASED [None]
  - DIZZINESS [None]
  - INCORRECT DOSE ADMINISTERED [None]
  - LETHARGY [None]
